FAERS Safety Report 17748348 (Version 1)
Quarter: 2020Q2

REPORT INFORMATION
  Report Type: Spontaneous
  Country: US (occurrence: US)
  Receive Date: 20200506
  Receipt Date: 20200506
  Transmission Date: 20200714
  Serious: Yes (Death)
  Sender: FDA-Public Use
  Company Number: US-ROCHE-2593946

PATIENT
  Age: 73 Year
  Sex: Female

DRUGS (7)
  1. ESBRIET [Suspect]
     Active Substance: PIRFENIDONE
     Indication: IDIOPATHIC PULMONARY FIBROSIS
     Dosage: TID
     Route: 048
     Dates: start: 20171230, end: 20200428
  2. POTASSIUM [Concomitant]
     Active Substance: POTASSIUM
  3. TORSEMIDE. [Concomitant]
     Active Substance: TORSEMIDE
  4. ASPIRIN. [Concomitant]
     Active Substance: ASPIRIN
  5. CENTRUM [MINERALS NOS;VITAMINS NOS] [Concomitant]
  6. OMEPRAZOLE. [Concomitant]
     Active Substance: OMEPRAZOLE
  7. VITAMIN D3 [Concomitant]
     Active Substance: CHOLECALCIFEROL

REACTIONS (1)
  - Death [Fatal]

NARRATIVE: CASE EVENT DATE: 20200428
